FAERS Safety Report 19829797 (Version 1)
Quarter: 2021Q3

REPORT INFORMATION
  Report Type: Spontaneous
  Country: US (occurrence: US)
  Receive Date: 20210914
  Receipt Date: 20210914
  Transmission Date: 20211014
  Serious: Yes (Hospitalization, Other)
  Sender: FDA-Public Use
  Company Number: None

PATIENT
  Age: 60 Year
  Sex: Female

DRUGS (11)
  1. ALLEGRA [Concomitant]
     Active Substance: FEXOFENADINE HYDROCHLORIDE
  2. CALCIUM [Concomitant]
     Active Substance: CALCIUM
  3. CITRACAL [Concomitant]
     Active Substance: CALCIUM CITRATE
  4. OMEPRAZOLE. [Concomitant]
     Active Substance: OMEPRAZOLE
  5. SYNTHROID [Concomitant]
     Active Substance: LEVOTHYROXINE SODIUM
  6. CELEBREX [Concomitant]
     Active Substance: CELECOXIB
  7. ESTRING [Concomitant]
     Active Substance: ESTRADIOL
  8. FISH OIL [Concomitant]
     Active Substance: FISH OIL
  9. XELJANZ XR [Suspect]
     Active Substance: TOFACITINIB CITRATE
     Indication: PSORIATIC ARTHROPATHY
     Route: 048
     Dates: start: 20190910
  10. IBUPROFEN. [Concomitant]
     Active Substance: IBUPROFEN
  11. VIT D [Concomitant]
     Active Substance: VITAMIN D NOS

REACTIONS (3)
  - Breast cancer [None]
  - Therapy interrupted [None]
  - Surgery [None]

NARRATIVE: CASE EVENT DATE: 20210812
